FAERS Safety Report 12662193 (Version 1)
Quarter: 2016Q3

REPORT INFORMATION
  Report Type: Spontaneous
  Country: US (occurrence: US)
  Receive Date: 20160817
  Receipt Date: 20160817
  Transmission Date: 20161109
  Serious: No
  Sender: FDA-Public Use
  Company Number: US-009507513-1607USA010437

PATIENT

DRUGS (1)
  1. ENTEREG [Suspect]
     Active Substance: ALVIMOPAN
     Route: 048

REACTIONS (5)
  - Dysphagia [Unknown]
  - Wrong technique in product usage process [Unknown]
  - Dysgeusia [Unknown]
  - Product quality issue [Unknown]
  - Choking sensation [Unknown]
